FAERS Safety Report 17544780 (Version 1)
Quarter: 2020Q1

REPORT INFORMATION
  Report Type: Spontaneous
  Country: DE (occurrence: DE)
  Receive Date: 20200316
  Receipt Date: 20200316
  Transmission Date: 20200409
  Serious: Yes (Hospitalization)
  Sender: FDA-Public Use
  Company Number: DE-ACCORD-175560

PATIENT
  Age: 69 Year
  Sex: Female

DRUGS (9)
  1. URAPIDIL [Concomitant]
     Active Substance: URAPIDIL
     Dosage: 30 MG,  NK, EXTENDED-RELEASE CAPSULE
  2. CANDESARTAN. [Concomitant]
     Active Substance: CANDESARTAN
     Dosage: 32 MG, NK, TABLETS
  3. URAPIDIL [Concomitant]
     Active Substance: URAPIDIL
     Dosage: 90 MG, NK, EXTENDED-RELEASE CAPSULES
  4. NALOXONE HYDROCHLORIDE/TILIDINE HYDROCHLORIDE [Concomitant]
     Active Substance: NALOXONE HYDROCHLORIDE\TILIDINE HYDROCHLORIDE
     Dosage: 8/100 MG, NK, EXTENDED-RELEASE TABLETS
  5. PANTOPRAZOLE [Concomitant]
     Active Substance: PANTOPRAZOLE
     Dosage: 40 MG, NK, TABLETS
  6. LEVOTHYROXINE. [Concomitant]
     Active Substance: LEVOTHYROXINE
     Dosage: 50 UG, NK, TABLETS
  7. PACLITAXEL/PACLITAXEL LIPOSOME [Suspect]
     Active Substance: PACLITAXEL
     Indication: PRODUCT USED FOR UNKNOWN INDICATION
     Dosage: 130 MG, LAST ON 14-11-2019
     Dates: end: 20191114
  8. METOPROLOL. [Concomitant]
     Active Substance: METOPROLOL
     Dosage: 23.75 MG, NK,  EXTENDED-RELEASE TABLETS
  9. EISEN (II) [Concomitant]
     Dosage: 55 MG, NK, EXTENDED-RELEASE CAPSULE

REACTIONS (4)
  - Decreased appetite [Unknown]
  - General physical health deterioration [Unknown]
  - Leukopenia [Unknown]
  - Anaemia [Unknown]
